FAERS Safety Report 5753599-7 (Version None)
Quarter: 2008Q2

REPORT INFORMATION
  Report Type: 
  Country: None (occurrence: None)
  Receive Date: 20080530
  Receipt Date: 20080521
  Transmission Date: 20081010
  Serious: Yes (Hospitalization)
  Sender: FDA-Public Use
  Company Number: US-JNJFOC-20080504733

PATIENT
  Sex: Female
  Weight: 81.65 kg

DRUGS (10)
  1. FENTANYL TRANSDERMAL SYSTEM [Suspect]
     Indication: PAIN
     Route: 062
  2. METHADONE HCL [Concomitant]
     Indication: MULTIPLE SCLEROSIS
     Route: 048
  3. WELLBUTRIN XL [Concomitant]
     Indication: BIPOLAR DISORDER
     Route: 048
  4. TRAZODONE HCL [Concomitant]
     Indication: MULTIPLE SCLEROSIS
     Dosage: 100 MG TABLETS
     Route: 048
  5. ZETIA [Concomitant]
     Indication: BLOOD CHOLESTEROL INCREASED
     Route: 048
  6. NEXIUM [Concomitant]
     Indication: GASTRIC DISORDER
     Route: 048
  7. FLEXERIL [Concomitant]
     Indication: RESTLESS LEGS SYNDROME
     Route: 048
  8. PREMARIN [Concomitant]
     Indication: MENOPAUSE
     Route: 048
  9. LUNESTA [Concomitant]
     Indication: INSOMNIA
     Route: 048
  10. NEURONTIN [Concomitant]
     Indication: MULTIPLE SCLEROSIS
     Route: 048

REACTIONS (6)
  - ANALGESIC DRUG LEVEL INCREASED [None]
  - ELBOW OPERATION [None]
  - FACE OEDEMA [None]
  - JAW FRACTURE [None]
  - LOSS OF CONSCIOUSNESS [None]
  - TOOTH DISORDER [None]
